FAERS Safety Report 9499092 (Version 1)
Quarter: 2013Q3

REPORT INFORMATION
  Report Type: Spontaneous
  Country: DE (occurrence: DE)
  Receive Date: 20130904
  Receipt Date: 20130904
  Transmission Date: 20140515
  Serious: Yes (Other)
  Sender: FDA-Public Use
  Company Number: DE-WATSON-2013-15637

PATIENT
  Sex: Male

DRUGS (1)
  1. LAMOTRIGINE (UNKNOWN) [Suspect]
     Indication: EPILEPSY
     Dosage: 100 MG, DAILY
     Route: 063
     Dates: start: 20070918, end: 20080106

REACTIONS (2)
  - Hepatic enzyme increased [Unknown]
  - Maternal exposure during pregnancy [Unknown]
